FAERS Safety Report 13621872 (Version 1)
Quarter: 2017Q2

REPORT INFORMATION
  Report Type: Spontaneous
  Country: US (occurrence: US)
  Receive Date: 20170607
  Receipt Date: 20170607
  Transmission Date: 20170830
  Serious: No
  Sender: FDA-Public Use
  Company Number: US-ROCHE-1799834

PATIENT
  Sex: Female
  Weight: 70.82 kg

DRUGS (29)
  1. NEURONTIN [Suspect]
     Active Substance: GABAPENTIN
     Indication: PRODUCT USED FOR UNKNOWN INDICATION
     Dosage: PATIENT TAKE DIFFERENTLY : TAKE 900 MG BY  MOUTH 3 TIMES A DAY
     Route: 048
  2. ZOLOFT [Concomitant]
     Active Substance: SERTRALINE HYDROCHLORIDE
  3. ATROPIN [Concomitant]
     Active Substance: ATROPINE
     Route: 042
  4. PALONOSETRON [Concomitant]
     Active Substance: PALONOSETRON
     Route: 065
  5. ZOLOFT [Suspect]
     Active Substance: SERTRALINE HYDROCHLORIDE
     Indication: PRODUCT USED FOR UNKNOWN INDICATION
     Route: 065
  6. REGORAFENIB [Concomitant]
     Active Substance: REGORAFENIB
     Route: 065
  7. LEUCOVORIN. [Concomitant]
     Active Substance: LEUCOVORIN
     Route: 042
  8. CELEXA [Concomitant]
     Active Substance: CITALOPRAM HYDROBROMIDE
     Dosage: 1 TABLET EVERY DAY
     Route: 065
  9. VITAMIN B12 [Concomitant]
     Active Substance: CYANOCOBALAMIN
     Dosage: DAILY
     Route: 048
  10. CALCIUM CARBONATE. [Concomitant]
     Active Substance: CALCIUM CARBONATE
     Dosage: DAILY
     Route: 048
  11. REGORAFENIB [Concomitant]
     Active Substance: REGORAFENIB
     Dosage: DAILY FOR 21 AND 8 DAYS, START AT 80 MG FOR 21 AND 28 DAYS THEN GARDUALLY INCREASED.
     Route: 065
  12. NORCO [Concomitant]
     Active Substance: ACETAMINOPHEN\HYDROCODONE BITARTRATE
  13. CAPECITABINE. [Suspect]
     Active Substance: CAPECITABINE
     Indication: COLON CANCER METASTATIC
     Dosage: BID X14 DAYS
     Route: 048
  14. CAPECITABINE. [Suspect]
     Active Substance: CAPECITABINE
     Dosage: BID X 14 DAYS FOR 21 DAYS FOR 21 DAYS
     Route: 048
  15. SUTENT [Suspect]
     Active Substance: SUNITINIB MALATE
     Indication: COLON CANCER
     Dosage: TAKE 4 WEEKS OUT OF 6 WEEK PERIOD.
     Route: 048
     Dates: start: 20160624
  16. CODEIN [Concomitant]
     Active Substance: CODEINE
  17. VITAMIN A [Concomitant]
     Active Substance: VITAMIN A
     Dosage: 1000 UNIT, DAILY
     Route: 048
  18. MORPHINE [Concomitant]
     Active Substance: MORPHINE
  19. IRINOTECAN [Concomitant]
     Active Substance: IRINOTECAN
     Route: 042
  20. LEUCOVORIN. [Concomitant]
     Active Substance: LEUCOVORIN
     Route: 065
  21. 5-FLUOROURACIL [Concomitant]
     Active Substance: FLUOROURACIL
     Route: 042
  22. ELOXATIN [Concomitant]
     Active Substance: OXALIPLATIN
     Dosage: DAY 1 X 12 CYCLES.
     Route: 042
  23. LOMOTIL [Suspect]
     Active Substance: ATROPINE SULFATE\DIPHENOXYLATE HYDROCHLORIDE
     Indication: DIARRHOEA
     Dosage: 2.5 MG TO 0.025 MG PER TABLET
     Route: 048
  24. FILGRASTIM [Concomitant]
     Active Substance: FILGRASTIM
     Dosage: 2 DAYS PRIOR TO EACH CHEMOTHERAPY.
     Route: 058
  25. 5-FLUOROURACIL [Concomitant]
     Active Substance: FLUOROURACIL
     Route: 065
  26. AVASTIN [Concomitant]
     Active Substance: BEVACIZUMAB
     Route: 065
  27. VITAMIN D3 [Concomitant]
     Active Substance: CHOLECALCIFEROL
     Dosage: 1000 UNITS, DAILY
     Route: 048
  28. IRINOTECAN [Concomitant]
     Active Substance: IRINOTECAN
     Route: 065
  29. DEXAMETHASON [Concomitant]
     Active Substance: DEXAMETHASONE
     Route: 042

REACTIONS (2)
  - Fatigue [Unknown]
  - Musculoskeletal chest pain [Unknown]
